FAERS Safety Report 7754750-X (Version None)
Quarter: 2011Q3

REPORT INFORMATION
  Report Type: 
  Country: None (occurrence: None)
  Receive Date: 20110916
  Receipt Date: 20110906
  Transmission Date: 20111222
  Serious: Yes (Other)
  Sender: FDA-Public Use
  Company Number: FI-BRISTOL-MYERS SQUIBB COMPANY-16033128

PATIENT
  Age: 58 Year
  Sex: Female

DRUGS (2)
  1. PACLITAXEL [Suspect]
     Indication: BREAST CANCER METASTATIC
     Dosage: CYCLE ON DAYS 1, 8 AND 15 OF 28 DAYS CYCLE.NO OF INFUSION-1
  2. BEVACIZUMAB [Suspect]
     Indication: BREAST CANCER METASTATIC

REACTIONS (3)
  - CUTANEOUS LUPUS ERYTHEMATOSUS [None]
  - BLOOD ALKALINE PHOSPHATASE INCREASED [None]
  - BLOOD PRESSURE INCREASED [None]
